FAERS Safety Report 17599277 (Version 1)
Quarter: 2020Q1

REPORT INFORMATION
  Report Type: Spontaneous
  Country: US (occurrence: US)
  Receive Date: 20200330
  Receipt Date: 20200330
  Transmission Date: 20200409
  Serious: Yes (Hospitalization)
  Sender: FDA-Public Use
  Company Number: None

PATIENT
  Age: 77 Year
  Sex: Male

DRUGS (8)
  1. NAPROXEN. [Concomitant]
     Active Substance: NAPROXEN
  2. AMLODIPINE [Concomitant]
     Active Substance: AMLODIPINE BESYLATE
  3. TADALAFIL. [Suspect]
     Active Substance: TADALAFIL
     Indication: PULMONARY ARTERIAL HYPERTENSION
     Route: 048
     Dates: start: 20190220
  4. FOLIC ACID. [Concomitant]
     Active Substance: FOLIC ACID
  5. ULORIC [Concomitant]
     Active Substance: FEBUXOSTAT
  6. BUMETANIDE. [Concomitant]
     Active Substance: BUMETANIDE
  7. TAMSULOSIN [Concomitant]
     Active Substance: TAMSULOSIN
  8. COLCHICINE. [Concomitant]
     Active Substance: COLCHICINE

REACTIONS (2)
  - Gout [None]
  - Therapy cessation [None]

NARRATIVE: CASE EVENT DATE: 20191101
